FAERS Safety Report 8826102 (Version 2)
Quarter: 2012Q4

REPORT INFORMATION
  Report Type: 
  Country: BR (occurrence: BR)
  Receive Date: 20121008
  Receipt Date: 20121030
  Transmission Date: 20130627
  Serious: Yes (Death, Life-Threatening, Hospitalization, Other)
  Sender: FDA-Public Use
  Company Number: BR-RANBAXY-2012RR-60815

PATIENT
  Age: 61 Year
  Sex: Male

DRUGS (6)
  1. ENALAPRIL [Suspect]
     Indication: PRODUCT USED FOR UNKNOWN INDICATION
     Dosage: 40 mg/day
     Route: 065
  2. LITHIUM CARBONATE [Interacting]
     Indication: BIPOLAR DISORDER
     Dosage: 600 mg/day
     Route: 048
  3. INSULIN [Concomitant]
     Indication: PRODUCT USED FOR UNKNOWN INDICATION
     Dosage: UNK
     Route: 065
  4. METFORMIN [Concomitant]
     Indication: PRODUCT USED FOR UNKNOWN INDICATION
     Dosage: 850 mg, tid
     Route: 065
  5. THYROXINE (T4) [Concomitant]
     Indication: PRODUCT USED FOR UNKNOWN INDICATION
     Dosage: 50 mcg/day
     Route: 065
  6. ATENOLOL [Concomitant]
     Indication: PRODUCT USED FOR UNKNOWN INDICATION
     Dosage: 100 mg/day
     Route: 065

REACTIONS (12)
  - Toxicity to various agents [Unknown]
  - Accidental overdose [Recovered/Resolved]
  - Metabolic encephalopathy [Unknown]
  - Somnolence [Unknown]
  - Fatigue [Unknown]
  - Confusional state [Unknown]
  - Muscle rigidity [Unknown]
  - Atrial fibrillation [Recovered/Resolved]
  - Hypotension [Recovered/Resolved]
  - Sick sinus syndrome [Recovered/Resolved]
  - Ventricular tachycardia [Recovered/Resolved]
  - Drug interaction [Unknown]
